FAERS Safety Report 19358209 (Version 2)
Quarter: 2021Q2

REPORT INFORMATION
  Report Type: Spontaneous
  Country: US (occurrence: US)
  Receive Date: 20210601
  Receipt Date: 20210610
  Transmission Date: 20210717
  Serious: No
  Sender: FDA-Public Use
  Company Number: US-AMGEN-USASP2021083875

PATIENT
  Age: 40 Year
  Sex: Female
  Weight: 60.4 kg

DRUGS (2)
  1. LOSARTAN. [Concomitant]
     Active Substance: LOSARTAN
     Indication: BLOOD PRESSURE ABNORMAL
     Dosage: 100 MILLIGRAM, QD
  2. MVASI [Suspect]
     Active Substance: BEVACIZUMAB-AWWB
     Indication: BRAIN NEOPLASM
     Dosage: 900 MILLIGRAM
     Route: 065
     Dates: start: 20210503

REACTIONS (1)
  - Blood pressure increased [Not Recovered/Not Resolved]

NARRATIVE: CASE EVENT DATE: 20210524
